FAERS Safety Report 4415295-8 (Version None)
Quarter: 2004Q3

REPORT INFORMATION
  Report Type: 
  Country: None (occurrence: None)
  Receive Date: 20040730
  Receipt Date: 20040719
  Transmission Date: 20050211
  Serious: Yes (Other)
  Sender: FDA-Public Use
  Company Number: 207925

PATIENT
  Age: 55 Year
  Sex: Female

DRUGS (8)
  1. MABTHERA (RITUXIMAB) CONC FOR SOLUTION FOR INFUSION [Suspect]
     Indication: NON-HODGKIN'S LYMPHOMA
     Dosage: 375 MG/M2, 1/WEEK, INTRAVENOUS
     Route: 042
  2. STEM CELL TRANSPLANTATION (STEM CELLS) [Suspect]
     Indication: NON-HODGKIN'S LYMPHOMA
  3. DOXORUBICIN HYDROCHLORIDE [Concomitant]
  4. CYCLOPHOSPHAMIDE [Concomitant]
  5. VINDESINE (VINDESINE) [Concomitant]
  6. BLEOMYCIN [Concomitant]
  7. ETOPOSIDE [Concomitant]
  8. TOTAL BODY IRRADIATION (RADIATION THERAPY) [Concomitant]

REACTIONS (2)
  - NEUTROPENIA [None]
  - STEM CELL TRANSPLANT [None]
